FAERS Safety Report 17994293 (Version 3)
Quarter: 2020Q3

REPORT INFORMATION
  Report Type: Spontaneous
  Country: US (occurrence: US)
  Receive Date: 20200708
  Receipt Date: 20200825
  Transmission Date: 20201103
  Serious: No
  Sender: FDA-Public Use
  Company Number: US-PFIZER INC-2020260362

PATIENT
  Age: 74 Year
  Sex: Female
  Weight: 68.04 kg

DRUGS (1)
  1. LUSTRAL [Suspect]
     Active Substance: SERTRALINE HYDROCHLORIDE
     Dosage: 150 MG, 1X/DAY

REACTIONS (1)
  - Drug ineffective [Unknown]
